FAERS Safety Report 6389121-4 (Version None)
Quarter: 2009Q4

REPORT INFORMATION
  Report Type: 
  Country: None (occurrence: None)
  Receive Date: 20091006
  Receipt Date: 20070628
  Transmission Date: 20100525
  Serious: Yes (Other)
  Sender: FDA-Public Use
  Company Number: US-ASTRAZENECA-2006UW26335

PATIENT
  Age: 39 Year
  Sex: Male
  Weight: 89.8 kg

DRUGS (29)
  1. SEROQUEL [Suspect]
     Indication: SCHIZOPHRENIA
     Route: 048
     Dates: start: 19970101
  2. SEROQUEL [Suspect]
     Indication: BIPOLAR DISORDER
     Route: 048
     Dates: start: 19970101
  3. SEROQUEL [Suspect]
     Indication: DEPRESSION
     Route: 048
     Dates: start: 19970101
  4. SEROQUEL [Suspect]
     Dosage: 100 MG, 200 MG FLUCTUATING
     Route: 048
     Dates: start: 20040101
  5. SEROQUEL [Suspect]
     Dosage: 100 MG, 200 MG FLUCTUATING
     Route: 048
     Dates: start: 20040101
  6. SEROQUEL [Suspect]
     Dosage: 100 MG, 200 MG FLUCTUATING
     Route: 048
     Dates: start: 20040101
  7. ABILIFY [Concomitant]
     Dates: start: 20060101
  8. CLOZARIL [Concomitant]
  9. HALDOL [Concomitant]
  10. RISPERDAL [Concomitant]
     Dates: start: 19980101
  11. ZYPREXA [Concomitant]
     Dates: start: 20040101
  12. RANITIDINE [Concomitant]
     Indication: GASTROOESOPHAGEAL REFLUX DISEASE
     Route: 048
     Dates: start: 19990920
  13. ATENOLOL [Concomitant]
     Indication: HYPERTENSION
     Dates: start: 19990920
  14. LEXAPRO [Concomitant]
     Dates: start: 20060101
  15. DEPAKOTE [Concomitant]
     Dosage: 500-3000 MG
     Route: 048
     Dates: start: 20060101
  16. NEURONTIN [Concomitant]
     Route: 048
     Dates: start: 20060101
  17. CYMBALTA [Concomitant]
     Indication: DEPRESSION
     Route: 048
     Dates: start: 20060119
  18. CYMBALTA [Concomitant]
     Indication: NEUROPATHY PERIPHERAL
     Route: 048
     Dates: start: 20060119
  19. ATIVAN [Concomitant]
     Dosage: 1 MG TWO TIMES A DAY AS NEEDED
     Route: 048
     Dates: start: 20060119
  20. ARTANE [Concomitant]
     Indication: PARKINSONIAN REST TREMOR
     Dates: start: 20060119
  21. DILANTIN [Concomitant]
     Dates: start: 20060119
  22. DIABETA [Concomitant]
     Dates: start: 20060119
  23. ZOCOR [Concomitant]
     Route: 048
     Dates: start: 20060119
  24. TOPROL-XL [Concomitant]
     Route: 048
     Dates: start: 20060119
  25. DAYPRO [Concomitant]
     Route: 048
     Dates: start: 20060119
  26. PRINIVIL [Concomitant]
     Dates: start: 20060119
  27. PAROXETINE HCL [Concomitant]
     Dates: start: 20040101
  28. ALPRAZOLAM [Concomitant]
     Dates: start: 20040101
  29. LITHIUM [Concomitant]
     Dates: start: 19980101

REACTIONS (3)
  - DIABETES MELLITUS [None]
  - NEUROPATHY PERIPHERAL [None]
  - TYPE 2 DIABETES MELLITUS [None]
